FAERS Safety Report 8885532 (Version 2)
Quarter: 2012Q4

REPORT INFORMATION
  Report Type: 
  Country: FR (occurrence: FR)
  Receive Date: 20121105
  Receipt Date: 20121109
  Transmission Date: 20130627
  Serious: Yes (Hospitalization)
  Sender: FDA-Public Use
  Company Number: FR-PFIZER INC-2012274392

PATIENT
  Age: 59 Year
  Sex: Female

DRUGS (3)
  1. INIPOMP [Suspect]
     Indication: GASTRIC DISORDER
     Dosage: UNK
     Route: 048
     Dates: start: 201010, end: 20121017
  2. LAMICTAL [Concomitant]
     Dosage: UNK
  3. ANAFRANIL [Concomitant]
     Dosage: UNK

REACTIONS (6)
  - Hyperhidrosis [Recovered/Resolved]
  - Salivary hypersecretion [Recovered/Resolved]
  - Hypothermia [Recovered/Resolved]
  - Blood pressure increased [Recovered/Resolved]
  - Blood chromogranin A increased [Not Recovered/Not Resolved]
  - Phaeochromocytoma [Unknown]
